FAERS Safety Report 10668669 (Version 3)
Quarter: 2015Q4

REPORT INFORMATION
  Report Type: Spontaneous
  Country: US (occurrence: US)
  Receive Date: 20141222
  Receipt Date: 20151016
  Transmission Date: 20160304
  Serious: No
  Sender: FDA-Public Use
  Company Number: US-PFIZER INC-2014136611

PATIENT
  Age: 66 Year
  Sex: Male
  Weight: 88 kg

DRUGS (1)
  1. INLYTA [Suspect]
     Active Substance: AXITINIB
     Indication: RENAL CANCER
     Dosage: 5 MG, 2X/DAY (ONE TABLET IN THE MORNING AND ONE IN THE EVENING)
     Dates: start: 2014

REACTIONS (11)
  - Ligament sprain [Unknown]
  - Haemorrhoids [Not Recovered/Not Resolved]
  - Diarrhoea [Recovering/Resolving]
  - Secretion discharge [Unknown]
  - Muscular weakness [Not Recovered/Not Resolved]
  - Ear discomfort [Unknown]
  - Back disorder [Unknown]
  - Sinus disorder [Unknown]
  - Dysphonia [Recovered/Resolved]
  - Asthenia [Not Recovered/Not Resolved]
  - Fatigue [Not Recovered/Not Resolved]
